FAERS Safety Report 23550153 (Version 1)
Quarter: 2024Q1

REPORT INFORMATION
  Report Type: Spontaneous
  Country: US (occurrence: None)
  Receive Date: 20240220
  Receipt Date: 20240220
  Transmission Date: 20240409
  Serious: Yes (Life-Threatening)
  Sender: FDA-Public Use
  Company Number: None

PATIENT
  Age: 44 Year
  Sex: Female
  Weight: 94.8 kg

DRUGS (6)
  1. NEULASTA [Suspect]
     Active Substance: PEGFILGRASTIM
     Indication: Neutropenia
     Dosage: OTHER FREQUENCY : ONCE;?
     Route: 058
     Dates: start: 20240206, end: 20240206
  2. DOCETAXEL [Concomitant]
     Active Substance: DOCETAXEL\DOCETAXEL ANHYDROUS
     Dates: start: 20240206, end: 20240206
  3. trastuzmab-qyyp [Concomitant]
     Dates: start: 20240206, end: 20240206
  4. PERTUZUMAB [Concomitant]
     Active Substance: PERTUZUMAB
     Dates: start: 20240206, end: 20240206
  5. APREPITANT [Concomitant]
     Active Substance: APREPITANT
     Dates: start: 20240206, end: 20240206
  6. CARBOPLATIN [Concomitant]
     Active Substance: CARBOPLATIN
     Dates: start: 20240206, end: 20240206

REACTIONS (7)
  - Dyspnoea [None]
  - Back pain [None]
  - Swelling [None]
  - Pharyngeal swelling [None]
  - Oropharyngeal pain [None]
  - Urticaria [None]
  - Hypotension [None]

NARRATIVE: CASE EVENT DATE: 20240206
